FAERS Safety Report 7558424-X (Version None)
Quarter: 2011Q2

REPORT INFORMATION
  Report Type: 
  Country: None (occurrence: None)
  Receive Date: 20110620
  Receipt Date: 20110614
  Transmission Date: 20111010
  Serious: Yes (Life-Threatening, Hospitalization, Other)
  Sender: FDA-Public Use
  Company Number: PHHY2011US50020

PATIENT
  Sex: Female

DRUGS (21)
  1. COLACE [Concomitant]
     Dosage: 100 MG AT BED TIME
  2. MUCINEX DM [Concomitant]
  3. AMITRIPTYLINE HCL [Concomitant]
     Dosage: 150 AT BEDTIME
  4. ALBUTEROL SULFATE AUTOHALER [Concomitant]
     Dosage: AS NEEDED
  5. ARICEPT [Concomitant]
     Dosage: 10 MG, DAILY
  6. MIRALAX [Concomitant]
     Dosage: 17 G, DAILY
  7. SIMVASTATIN [Concomitant]
     Dosage: 40 MG, DAILY
  8. DIAZEPAM [Concomitant]
     Dosage: 5 MG, EVERY 8 HRS
  9. NORVASC [Concomitant]
     Dosage: 5 MG, DAILY
  10. PLAVIX [Concomitant]
     Dosage: 75 MG, DAILY
  11. VALIUM [Concomitant]
     Indication: ANXIETY
     Dosage: 5 MG, EVERY 8 HRS AS NEEDED
  12. GLEEVEC [Suspect]
     Dosage: 100 MG, TID
     Route: 048
  13. ADVAIR DISKUS 100/50 [Concomitant]
     Dosage: 250/50 1 PUFF TWICE DAILY
  14. BENEFIBER [Concomitant]
     Dosage: 2 TSP DAILY
  15. MULTI-VITAMIN [Concomitant]
     Dosage: DAILY
  16. GLEEVEC [Suspect]
     Indication: CHRONIC MYELOID LEUKAEMIA
     Dosage: 300 MG, DAILY
     Route: 048
     Dates: start: 20110517
  17. PREVACID [Concomitant]
     Dosage: 15 MG, DAILY
  18. PHENERGAN HCL [Concomitant]
     Dosage: AS NEEDED
  19. TESSALON [Concomitant]
     Dosage: 100 3 TIMES DAILY
  20. PROMETHAZINE [Concomitant]
  21. ASPIRIN [Concomitant]
     Dosage: 81 MG, DAILY

REACTIONS (9)
  - EMBOLIC STROKE [None]
  - CARDIAC FAILURE CONGESTIVE [None]
  - SENILE DEMENTIA [None]
  - FALL [None]
  - LACUNAR INFARCTION [None]
  - DYSLIPIDAEMIA [None]
  - MICROANGIOPATHY [None]
  - SPEECH DISORDER [None]
  - HYPERTENSION [None]
